FAERS Safety Report 24287820 (Version 1)
Quarter: 2024Q3

REPORT INFORMATION
  Report Type: Spontaneous
  Country: JP (occurrence: JP)
  Receive Date: 20240905
  Receipt Date: 20240905
  Transmission Date: 20241016
  Serious: Yes (Other)
  Sender: ELI LILLY AND CO
  Company Number: JP-ELI_LILLY_AND_COMPANY-JP202407014417

PATIENT
  Sex: Female

DRUGS (3)
  1. VERZENIO [Suspect]
     Active Substance: ABEMACICLIB
     Indication: Breast cancer recurrent
     Dosage: 300 MG
     Route: 048
     Dates: start: 20201130, end: 20210420
  2. FASLODEX [Suspect]
     Active Substance: FULVESTRANT
     Indication: Breast cancer recurrent
     Dosage: 500 MG, DAILY
     Route: 030
     Dates: start: 20201130, end: 20210420
  3. LEUPLIN [Suspect]
     Active Substance: LEUPROLIDE ACETATE
     Indication: Breast cancer recurrent
     Dosage: 3.75 MG, DAILY
     Route: 058
     Dates: start: 20201130, end: 20210420

REACTIONS (1)
  - Appendicitis noninfective [Recovered/Resolved]

NARRATIVE: CASE EVENT DATE: 20210201
